FAERS Safety Report 8307436-7 (Version None)
Quarter: 2012Q2

REPORT INFORMATION
  Report Type: 
  Country: None (occurrence: None)
  Receive Date: 20120424
  Receipt Date: 20120413
  Transmission Date: 20120825
  Serious: Yes (Hospitalization)
  Sender: FDA-Public Use
  Company Number: US-SANOFI-AVENTIS-2012SA025910

PATIENT
  Weight: 49.9 kg

DRUGS (3)
  1. LOVENOX [Concomitant]
     Route: 065
  2. CABAZITAXEL [Suspect]
     Route: 042
     Dates: start: 20120410, end: 20120410
  3. CISPLATIN [Suspect]
     Route: 042
     Dates: start: 20120410, end: 20120410

REACTIONS (1)
  - HAEMATEMESIS [None]
